FAERS Safety Report 13864829 (Version 2)
Quarter: 2017Q3

REPORT INFORMATION
  Report Type: Spontaneous
  Country: GB (occurrence: GB)
  Receive Date: 20170814
  Receipt Date: 20170926
  Transmission Date: 20171127
  Serious: Yes (Other)
  Sender: FDA-Public Use
  Company Number: GB-PFIZER INC-2017344304

PATIENT
  Age: 5 Year
  Sex: Male
  Weight: 18.65 kg

DRUGS (1)
  1. TOLTERODINE TARTRATE. [Suspect]
     Active Substance: TOLTERODINE TARTRATE
     Indication: HYPERTONIC BLADDER
     Dosage: 1 MG, UNK
     Route: 048
     Dates: start: 20170628, end: 20170708

REACTIONS (3)
  - Rash generalised [Recovering/Resolving]
  - Pruritus [Recovering/Resolving]
  - Product use issue [Unknown]

NARRATIVE: CASE EVENT DATE: 20170628
